FAERS Safety Report 9048608 (Version 1)
Quarter: 2013Q1

REPORT INFORMATION
  Report Type: Spontaneous
  Country: US (occurrence: None)
  Receive Date: 20130130
  Receipt Date: 20130130
  Transmission Date: 20140127
  Serious: Yes (Hospitalization)
  Sender: FDA-Public Use
  Company Number: None

PATIENT
  Sex: Male
  Weight: 83.3 kg

DRUGS (5)
  1. PLAVIX [Suspect]
     Indication: MITRAL VALVE REPAIR
     Dosage: CHRONIC
     Route: 048
  2. ASA [Suspect]
     Indication: MITRAL VALVE REPAIR
     Dosage: CHRONIC
     Route: 048
  3. LISINOPRIL [Concomitant]
  4. ZOCOR [Concomitant]
  5. NON-ASPIRIN RELIEVER [Concomitant]

REACTIONS (13)
  - Anaemia [None]
  - Retroperitoneal abscess [None]
  - Dyspnoea [None]
  - Asthenia [None]
  - Duodenal ulcer haemorrhage [None]
  - Adenocarcinoma pancreas [None]
  - Retroperitoneal haemorrhage [None]
  - Intra-abdominal haemorrhage [None]
  - General physical health deterioration [None]
  - Shock [None]
  - Multi-organ failure [None]
  - Faeces discoloured [None]
  - Small intestine adenocarcinoma [None]
